FAERS Safety Report 4912965-X (Version None)
Quarter: 2006Q1

REPORT INFORMATION
  Report Type: 
  Country: None (occurrence: None)
  Receive Date: 20060210
  Receipt Date: 20060202
  Transmission Date: 20060701
  Serious: Yes (Other)
  Sender: FDA-Public Use
  Company Number: 2006016814

PATIENT
  Age: 35 Year
  Sex: Female
  Weight: 99.7913 kg

DRUGS (3)
  1. BENADRYL [Suspect]
     Indication: INSOMNIA
     Dosage: 2 ULTRATABS ORAL
     Route: 048
     Dates: start: 20060128, end: 20060201
  2. QUETIAPINE FUMARATE [Suspect]
     Indication: INSOMNIA
     Dates: start: 20060101
  3. SERTRALINE HCL [Concomitant]

REACTIONS (4)
  - DEPRESSION [None]
  - DRUG INEFFECTIVE [None]
  - DRY MOUTH [None]
  - MIDDLE INSOMNIA [None]
